FAERS Safety Report 4586933-4 (Version None)
Quarter: 2005Q1

REPORT INFORMATION
  Report Type: 
  Country: None (occurrence: None)
  Receive Date: 20050218
  Receipt Date: 20050210
  Transmission Date: 20050727
  Serious: Yes (Hospitalization)
  Sender: FDA-Public Use
  Company Number: PHEH2005US01869

PATIENT
  Age: 84 Year
  Sex: Female

DRUGS (8)
  1. ZELNORM [Suspect]
     Indication: CONSTIPATION
     Dosage: 6 MG, BID
     Route: 048
     Dates: start: 20030101, end: 20050130
  2. HYZAAR [Concomitant]
     Indication: HYPERTENSION
     Dosage: 100/25 MG QD
  3. FOSAMAX ONCE WEEKLY [Concomitant]
     Indication: OSTEOPOROSIS
     Dosage: 70 MG, QW
  4. PROTONIX [Concomitant]
     Indication: GASTROOESOPHAGEAL REFLUX DISEASE
     Dosage: 40 MG, QD
  5. ASPIRIN [Concomitant]
     Dosage: 81 MG, QD
  6. M.V.I. [Concomitant]
  7. ZINC [Concomitant]
  8. CALCIUM WITH VITAMIN D [Concomitant]
     Indication: OSTEOPOROSIS
     Dosage: UNK, TID

REACTIONS (7)
  - ABDOMINAL DISTENSION [None]
  - ABDOMINAL PAIN [None]
  - COLECTOMY [None]
  - COLOSTOMY [None]
  - FAECALOMA [None]
  - FLATULENCE [None]
  - LARGE INTESTINE PERFORATION [None]
